FAERS Safety Report 9672178 (Version 3)
Quarter: 2014Q1

REPORT INFORMATION
  Report Type: Spontaneous
  Country: US (occurrence: US)
  Receive Date: 20131106
  Receipt Date: 20140317
  Transmission Date: 20141002
  Serious: Yes (Hospitalization)
  Sender: FDA-Public Use
  Company Number: US-B.I. PHARMACEUTICALS,INC./RIDGEFIELD-2013-BI-13750BP

PATIENT
  Age: 74 Year
  Sex: Female
  Weight: 83.01 kg

DRUGS (10)
  1. PRADAXA [Suspect]
     Indication: ANTICOAGULANT THERAPY
     Dosage: 300 MG
     Route: 048
     Dates: start: 20110502, end: 20120421
  2. PRADAXA [Suspect]
     Indication: ATRIAL FIBRILLATION
  3. MULTAQ [Concomitant]
     Dosage: 800 MG
     Route: 048
  4. LASIX [Concomitant]
     Dosage: 40 MG
     Route: 048
  5. CITALOPRAM [Concomitant]
     Dosage: 10 MG
     Route: 048
  6. JANUMET [Concomitant]
     Dosage: DOSE PER APPLICATION AND DAILYDOSE: 50/500 MG
     Route: 048
  7. GLIMEPIRIDE [Concomitant]
     Dosage: 2 MG
     Route: 048
  8. PEPCID [Concomitant]
     Dosage: 40 MG
     Route: 048
  9. ZOCOR [Concomitant]
     Dosage: 20 MG
     Route: 048
  10. LOPRESSOR [Concomitant]
     Dosage: 50 MG
     Route: 048

REACTIONS (2)
  - Upper gastrointestinal haemorrhage [Unknown]
  - Gingival bleeding [Unknown]
